FAERS Safety Report 14481007 (Version 2)
Quarter: 2018Q1

REPORT INFORMATION
  Report Type: Spontaneous
  Country: CN (occurrence: CN)
  Receive Date: 20180202
  Receipt Date: 20180208
  Transmission Date: 20180509
  Serious: Yes (Hospitalization, Other)
  Sender: FDA-Public Use
  Company Number: CN-ASTRAZENECA-2018SE02843

PATIENT
  Age: 82 Year
  Sex: Male

DRUGS (3)
  1. WARFARIN [Concomitant]
     Active Substance: WARFARIN
     Indication: CEREBROVASCULAR ACCIDENT
  2. IRESSA [Suspect]
     Active Substance: GEFITINIB
     Indication: LUNG ADENOCARCINOMA STAGE IV
     Route: 048
  3. IRESSA [Suspect]
     Active Substance: GEFITINIB
     Indication: LUNG ADENOCARCINOMA STAGE IV
     Route: 048
     Dates: start: 201712

REACTIONS (20)
  - Coagulation test abnormal [Unknown]
  - Nausea [Unknown]
  - Weight decreased [Recovering/Resolving]
  - Dry mouth [Unknown]
  - Interstitial lung disease [Recovered/Resolved]
  - Pneumonia [Unknown]
  - Dermatitis [Recovering/Resolving]
  - Pruritus [Unknown]
  - Liver function test abnormal [Recovering/Resolving]
  - Asthenia [Recovering/Resolving]
  - Hydrothorax [Not Recovered/Not Resolved]
  - Vomiting [Recovered/Resolved]
  - Visual impairment [Recovering/Resolving]
  - Odynophagia [Recovering/Resolving]
  - Ocular hyperaemia [Recovering/Resolving]
  - Cough [Unknown]
  - Peripheral swelling [Unknown]
  - Mouth ulceration [Not Recovered/Not Resolved]
  - Drug ineffective [Unknown]
  - Diarrhoea [Recovered/Resolved]
